FAERS Safety Report 8378873-X (Version None)
Quarter: 2012Q2

REPORT INFORMATION
  Report Type: 
  Country: None (occurrence: None)
  Receive Date: 20120522
  Receipt Date: 20120522
  Transmission Date: 20120825
  Serious: No
  Sender: FDA-Public Use
  Company Number: None

PATIENT
  Age: 70 Year
  Sex: Male
  Weight: 91 kg

DRUGS (10)
  1. LACTATED RINGER'S [Concomitant]
  2. ENOXAPARIN [Concomitant]
  3. PHENYLEPHRINE HCL [Concomitant]
  4. PROPOFOL [Concomitant]
  5. SODIUM CHLORIDE [Concomitant]
  6. INSULIN [Concomitant]
  7. ALBUMINAR-25 [Suspect]
     Indication: HYPOTENSION
     Dosage: 25G ONE TIME IV
     Route: 042
     Dates: start: 20120302, end: 20120302
  8. ENALAPRIL MALEATE [Concomitant]
  9. TAMSULOSIN HCL [Concomitant]
  10. MAGNESIUM SULFATE [Concomitant]

REACTIONS (1)
  - ANAPHYLACTIC REACTION [None]
